FAERS Safety Report 6315413-0 (Version None)
Quarter: 2009Q3

REPORT INFORMATION
  Report Type: 
  Country: None (occurrence: None)
  Receive Date: 20090819
  Receipt Date: 20090818
  Transmission Date: 20100115
  Serious: Yes (Hospitalization)
  Sender: FDA-Public Use
  Company Number: US-ROXANE LABORATORIES, INC.-2009-RO-00838RO

PATIENT
  Sex: Male

DRUGS (4)
  1. PREDNISONE [Suspect]
     Indication: COLITIS ULCERATIVE
     Dates: start: 20080101, end: 20090101
  2. AZATHIOPRINE [Suspect]
     Indication: COLITIS ULCERATIVE
     Dosage: 50 MG
     Dates: start: 20090415
  3. AZATHIOPRINE [Suspect]
     Dosage: 100 MG
     Dates: end: 20090724
  4. COLAZAL [Concomitant]
     Indication: COLITIS ULCERATIVE

REACTIONS (5)
  - ANAEMIA [None]
  - FUNGUS CULTURE POSITIVE [None]
  - IMPAIRED HEALING [None]
  - PANCYTOPENIA [None]
  - PNEUMONIA [None]
